FAERS Safety Report 8433753-6 (Version None)
Quarter: 2012Q2

REPORT INFORMATION
  Report Type: 
  Country: None (occurrence: None)
  Receive Date: 20120613
  Receipt Date: 20120612
  Transmission Date: 20120825
  Serious: No
  Sender: FDA-Public Use
  Company Number: US-BAYER-2012-058176

PATIENT
  Age: 48 Year
  Sex: Female

DRUGS (2)
  1. MAGNEVIST [Suspect]
     Indication: ARTERIOGRAM CAROTID
     Dosage: 20 ML, ONCE
     Route: 042
     Dates: start: 20120608, end: 20120608
  2. MAGNEVIST [Suspect]
     Indication: CONVULSION

REACTIONS (2)
  - VOMITING [None]
  - NAUSEA [None]
